FAERS Safety Report 23660817 (Version 1)
Quarter: 2024Q1

REPORT INFORMATION
  Report Type: Report from Study
  Country: US (occurrence: US)
  Receive Date: 20240322
  Receipt Date: 20240322
  Transmission Date: 20240409
  Serious: Yes (Hospitalization, Other)
  Sender: FDA-Public Use
  Company Number: US-ABBVIE-5685362

PATIENT
  Age: 56 Year
  Sex: Male

DRUGS (1)
  1. HUMIRA [Suspect]
     Active Substance: ADALIMUMAB
     Indication: Hidradenitis
     Dosage: FORM STRENGTH: 40 MILLIGRAM CITRATE FREE
     Route: 058
     Dates: start: 20231009, end: 20240312

REACTIONS (6)
  - Drainage [Unknown]
  - Arthritis infective [Recovering/Resolving]
  - Joint swelling [Unknown]
  - Arthralgia [Unknown]
  - Erythema [Unknown]
  - Feeling hot [Unknown]

NARRATIVE: CASE EVENT DATE: 20240311
